FAERS Safety Report 15005215 (Version 1)
Quarter: 2018Q2

REPORT INFORMATION
  Report Type: Spontaneous
  Country: US (occurrence: US)
  Receive Date: 20180525
  Receipt Date: 20180525
  Transmission Date: 20180711
  Serious: No
  Sender: FDA-Public Use
  Company Number: None

PATIENT
  Age: 40 Year
  Sex: Male
  Weight: 99 kg

DRUGS (8)
  1. LOSARTIN [Concomitant]
     Active Substance: LOSARTAN
  2. ADVAIR HFA [Concomitant]
     Active Substance: FLUTICASONE PROPIONATE\SALMETEROL XINAFOATE
  3. ATORVASTATIN [Concomitant]
     Active Substance: ATORVASTATIN
  4. VITAMIN D3 [Concomitant]
     Active Substance: CHOLECALCIFEROL
  5. FINASTERIDE. [Suspect]
     Active Substance: FINASTERIDE
     Indication: ALOPECIA
     Route: 048
  6. ALBUTEROL. [Concomitant]
     Active Substance: ALBUTEROL
  7. MULTIVITAMIN [Concomitant]
     Active Substance: VITAMINS
  8. MONTELUCAST [Concomitant]
     Active Substance: MONTELUKAST SODIUM

REACTIONS (4)
  - Anxiety [None]
  - Condition aggravated [None]
  - Drug withdrawal syndrome [None]
  - Depression [None]

NARRATIVE: CASE EVENT DATE: 20180524
